FAERS Safety Report 25727321 (Version 1)
Quarter: 2025Q3

REPORT INFORMATION
  Report Type: Spontaneous
  Country: US (occurrence: US)
  Receive Date: 20250826
  Receipt Date: 20250826
  Transmission Date: 20251021
  Serious: No
  Sender: NOBELPHARMA
  Company Number: US-NPA-2025-AER-01431

PATIENT
  Sex: Female

DRUGS (1)
  1. HYFTOR [Suspect]
     Active Substance: SIROLIMUS
     Indication: Congenital anomaly
     Route: 050

REACTIONS (3)
  - Lymphatic malformation [Unknown]
  - Papule [Unknown]
  - Off label use [Unknown]
